FAERS Safety Report 7739761-2 (Version None)
Quarter: 2011Q3

REPORT INFORMATION
  Report Type: 
  Country: None (occurrence: None)
  Receive Date: 20110906
  Receipt Date: 20110825
  Transmission Date: 20111222
  Serious: Yes (Hospitalization)
  Sender: FDA-Public Use
  Company Number: ACO_26386_2011

PATIENT
  Age: 44 Year
  Sex: Male
  Weight: 79.4 kg

DRUGS (18)
  1. CITALOPRAM HYDROBROMIDE [Concomitant]
  2. LORATADINE [Concomitant]
  3. AMPYRA [Suspect]
     Indication: GAIT DISTURBANCE
     Dosage: 10 MG, BID, ORAL
     Route: 048
     Dates: start: 20110101
  4. ACYCLOVIR /00587301/ (ACICLOVIR) [Concomitant]
  5. BACLOFEN [Concomitant]
  6. FLEXERIL /00428402/ (CYCLOBENZAPRINE HYDROCHLORIDE) [Concomitant]
  7. COLACE (DOCUSATE SODIUM) [Concomitant]
  8. OXYCODONE HCL [Concomitant]
  9. VITAMIN B-12 [Concomitant]
  10. FENTANYL /00174602/ (FENTANYL CITRATE) [Concomitant]
  11. PROVIGIL [Concomitant]
  12. DETROL [Concomitant]
  13. LEVOTHYROXINE SODIUM [Concomitant]
  14. VALIUM [Concomitant]
  15. VITAMIN C /00008001/ (ASCORBIC ACID) [Concomitant]
  16. GILENYA [Suspect]
     Indication: PRODUCT USED FOR UNKNOWN INDICATION
     Dosage: 0.5 MG, ORAL
     Route: 048
     Dates: start: 20110101
  17. LORAZEPAM [Concomitant]
  18. MULTIVITAMIN /00831701/ (VITAMINS NOS) [Concomitant]

REACTIONS (5)
  - PYREXIA [None]
  - DISTURBANCE IN ATTENTION [None]
  - URINARY TRACT INFECTION [None]
  - DYSPNOEA [None]
  - CHILLS [None]
